FAERS Safety Report 4697563-8 (Version None)
Quarter: 2005Q2

REPORT INFORMATION
  Report Type: 
  Country: None (occurrence: None)
  Receive Date: 20050621
  Receipt Date: 20050606
  Transmission Date: 20051028
  Serious: Yes (Other)
  Sender: FDA-Public Use
  Company Number: USA050393284

PATIENT
  Sex: Female

DRUGS (2)
  1. FORTEO [Suspect]
     Dosage: 20 UG DAY
     Dates: start: 20040304, end: 20040901
  2. HYDROCHLOROTHIAZIDE [Concomitant]

REACTIONS (2)
  - BLOOD TEST ABNORMAL [None]
  - LEUKAEMIA [None]
